FAERS Safety Report 18560035 (Version 3)
Quarter: 2020Q4

REPORT INFORMATION
  Report Type: Spontaneous
  Country: IT (occurrence: IT)
  Receive Date: 20201130
  Receipt Date: 20201208
  Transmission Date: 20210114
  Serious: Yes (Hospitalization, Other)
  Sender: FDA-Public Use
  Company Number: IT-SA-2020SA340052

PATIENT

DRUGS (3)
  1. INSULIN LISPRO [Interacting]
     Active Substance: INSULIN LISPRO
     Indication: TYPE 2 DIABETES MELLITUS
     Dosage: 4 IU, DAY
     Route: 058
     Dates: start: 20110817, end: 20201014
  2. LANTUS [Suspect]
     Active Substance: INSULIN GLARGINE
     Indication: TYPE 2 DIABETES MELLITUS
     Dosage: 8 IU, DAY
     Route: 058
     Dates: start: 20080827
  3. LANTUS [Interacting]
     Active Substance: INSULIN GLARGINE
     Dosage: DOSE REDUCED
     Route: 058

REACTIONS (3)
  - Sopor [Recovered/Resolved]
  - Drug interaction [Recovered/Resolved]
  - Hypoglycaemic coma [Recovered/Resolved]

NARRATIVE: CASE EVENT DATE: 20201014
